FAERS Safety Report 6601044-1 (Version None)
Quarter: 2010Q1

REPORT INFORMATION
  Report Type: 
  Country: None (occurrence: None)
  Receive Date: 20100225
  Receipt Date: 20100217
  Transmission Date: 20100710
  Serious: Yes (Other)
  Sender: FDA-Public Use
  Company Number: US-JNJFOC-20100208771

PATIENT
  Sex: Female
  Weight: 86.18 kg

DRUGS (4)
  1. DURAGESIC-100 [Suspect]
     Indication: FIBROMYALGIA
     Route: 062
  2. DURAGESIC-100 [Suspect]
     Indication: BACK PAIN
     Route: 062
  3. FENTANYL CITRATE [Suspect]
     Indication: FIBROMYALGIA
     Route: 062
  4. FENTANYL CITRATE [Suspect]
     Indication: BACK PAIN
     Route: 062

REACTIONS (7)
  - DRUG DOSE OMISSION [None]
  - FALL [None]
  - MEMORY IMPAIRMENT [None]
  - ROAD TRAFFIC ACCIDENT [None]
  - SKELETAL INJURY [None]
  - SPEECH DISORDER [None]
  - WITHDRAWAL SYNDROME [None]
